FAERS Safety Report 7762643-7 (Version None)
Quarter: 2011Q3

REPORT INFORMATION
  Report Type: 
  Country: None (occurrence: None)
  Receive Date: 20110920
  Receipt Date: 20110917
  Transmission Date: 20111222
  Serious: Yes (Other)
  Sender: FDA-Public Use
  Company Number: DE-GLAXOSMITHKLINE-D0072759A

PATIENT
  Sex: Female

DRUGS (3)
  1. ETHANOL [Suspect]
     Route: 065
     Dates: start: 20110916, end: 20110916
  2. ARIXTRA [Suspect]
     Dosage: 17.5MG SINGLE DOSE
     Route: 048
     Dates: start: 20110916, end: 20110916
  3. CITALOPRAM HYDROBROMIDE [Suspect]
     Dosage: 300MG SINGLE DOSE
     Route: 065
     Dates: start: 20110916, end: 20110916

REACTIONS (2)
  - VOMITING [None]
  - SUICIDE ATTEMPT [None]
